FAERS Safety Report 8617397-9 (Version None)
Quarter: 2012Q3

REPORT INFORMATION
  Report Type: 
  Country: None (occurrence: None)
  Receive Date: 20120823
  Receipt Date: 20120810
  Transmission Date: 20120928
  Serious: Yes (Other)
  Sender: FDA-Public Use
  Company Number: JP-MYLANLABS-2012S1016748

PATIENT
  Age: 67 Year
  Sex: Female
  Weight: 47 kg

DRUGS (12)
  1. HEPARIN [Concomitant]
     Indication: ANTICOAGULANT THERAPY
     Dosage: CONTINUOUS INFUSION 500-700 U/HOUR
     Route: 065
  2. SEVOFLURANE [Concomitant]
     Indication: MAINTENANCE OF ANAESTHESIA
     Dosage: 1.3%
     Route: 065
  3. SUGAMMADEX [Concomitant]
     Indication: NEUROMUSCULAR BLOCKADE REVERSAL
     Route: 065
  4. ULTIVA [Suspect]
     Indication: MAINTENANCE OF ANAESTHESIA
     Dosage: CONTINUOUS INFUSION 0.15 MICROG/KG/HOUR
     Route: 065
  5. PROPOFOL [Concomitant]
     Indication: INDUCTION OF ANAESTHESIA
     Route: 065
  6. ROCURONIUM BROMIDE [Concomitant]
     Indication: HYPOTONIA
     Route: 065
  7. FENTANYL [Concomitant]
     Indication: MAINTENANCE OF ANAESTHESIA
     Dosage: INTERMITTENT DOSES (0.2MG)
     Route: 065
  8. KETAMINE HCL [Suspect]
     Dosage: 40MG ADMINISTERED INTRAOPERATIVELY
     Route: 065
  9. FENTANYL [Concomitant]
     Indication: INDUCTION OF ANAESTHESIA
     Route: 042
  10. KETAMINE HCL [Suspect]
     Dosage: 40MG ADMINISTERED INTRAOPERATIVELY
     Route: 065
  11. KETAMINE HCL [Suspect]
     Indication: INDUCTION OF ANAESTHESIA
     Route: 065
  12. KETAMINE HCL [Suspect]
     Indication: PROPHYLAXIS
     Route: 065

REACTIONS (3)
  - POSTERIOR REVERSIBLE ENCEPHALOPATHY SYNDROME [None]
  - HYPERTENSION [None]
  - HYPERAESTHESIA [None]
